FAERS Safety Report 7176361-X (Version None)
Quarter: 2010Q4

REPORT INFORMATION
  Report Type: 
  Country: None (occurrence: None)
  Receive Date: 20101207
  Receipt Date: 20101126
  Transmission Date: 20110411
  Serious: Yes (Hospitalization)
  Sender: FDA-Public Use
  Company Number: 767367

PATIENT

DRUGS (4)
  1. ETOPOSIDE [Suspect]
     Indication: SMALL CELL LUNG CANCER STAGE UNSPECIFIED
     Dosage: 150 MG MILLIGRAM(S), 1 WEEK, INTRAVENOUS
     Route: 042
     Dates: start: 20101013
  2. CARBOPLATIN [Suspect]
     Indication: SMALL CELL LUNG CANCER STAGE UNSPECIFIED
     Dosage: 386 MG MILLIGRAM(S),
     Dates: start: 20101013
  3. ETOPOSIDE [Suspect]
     Dosage: 250 MG MILLIGRAM(S), ORAL
     Route: 048
     Dates: start: 20101017
  4. NEULASTA [Suspect]
     Indication: CHEMOTHERAPY
     Dosage: 6 MG MILLIGRAM(S), SUBCUTANEOUS
     Route: 058
     Dates: start: 20101006

REACTIONS (5)
  - DRUG INEFFECTIVE [None]
  - MALAISE [None]
  - NEUTROPENIC SEPSIS [None]
  - VOMITING [None]
  - WHITE BLOOD CELL COUNT DECREASED [None]
